FAERS Safety Report 6923505-8 (Version None)
Quarter: 2010Q3

REPORT INFORMATION
  Report Type: 
  Country: None (occurrence: None)
  Receive Date: 20100813
  Receipt Date: 20100809
  Transmission Date: 20110219
  Serious: Yes (Hospitalization)
  Sender: FDA-Public Use
  Company Number: A0678888A

PATIENT
  Age: 75 Year
  Sex: Female

DRUGS (5)
  1. FLOVENT [Suspect]
     Indication: CHRONIC OBSTRUCTIVE PULMONARY DISEASE
     Dosage: 2PUFF TWICE PER DAY
     Route: 055
     Dates: start: 19991001
  2. ALBUTEROL [Concomitant]
  3. IPRATROPIUM BROMIDE [Concomitant]
  4. LOPRESSOR [Concomitant]
  5. METOPROLOL TARTRATE [Concomitant]

REACTIONS (7)
  - CHOKING [None]
  - DRUG INEFFECTIVE [None]
  - DYSPNOEA [None]
  - INFLUENZA [None]
  - OROPHARYNGEAL PAIN [None]
  - PRODUCT QUALITY ISSUE [None]
  - THROAT IRRITATION [None]
